FAERS Safety Report 9485643 (Version 1)
Quarter: 2013Q3

REPORT INFORMATION
  Report Type: Spontaneous
  Country: US (occurrence: None)
  Receive Date: 20130827
  Receipt Date: 20130827
  Transmission Date: 20140515
  Serious: Yes (Death, Hospitalization)
  Sender: FDA-Public Use
  Company Number: None

PATIENT
  Sex: Male
  Weight: 68.04 kg

DRUGS (1)
  1. PACERONE [Suspect]
     Indication: ARRHYTHMIA
     Dosage: 2-DAY (400)
     Route: 048
     Dates: start: 201201, end: 201205

REACTIONS (13)
  - Dyspnoea [None]
  - Tremor [None]
  - Dizziness [None]
  - Restlessness [None]
  - Depression [None]
  - Chest pain [None]
  - Dyspnoea [None]
  - Haemoptysis [None]
  - Arrhythmia [None]
  - Heart rate decreased [None]
  - Blood pressure abnormal [None]
  - Muscle atrophy [None]
  - Abasia [None]
